FAERS Safety Report 8469029 (Version 2)
Quarter: 2012Q4

REPORT INFORMATION
  Report Type: 
  Country: US (occurrence: US)
  Receive Date: 20120321
  Receipt Date: 20120910
  Transmission Date: 20130627
  Serious: Yes (Hospitalization)
  Sender: FDA-Public Use
  Company Number: US-BAYER-2012-024457

PATIENT
  Age: 23 Year
  Sex: Female
  Weight: 46.71 kg

DRUGS (2)
  1. YASMIN [Suspect]
     Dosage: UNK
     Dates: start: 200801, end: 200903
  2. OCELLA [Suspect]
     Dosage: UNK
     Dates: start: 200801, end: 200903

REACTIONS (7)
  - Cholecystectomy [None]
  - Pain [None]
  - General physical health deterioration [None]
  - Anxiety [None]
  - Anhedonia [None]
  - Emotional distress [None]
  - Injury [None]
